FAERS Safety Report 4518239-3 (Version None)
Quarter: 2004Q4

REPORT INFORMATION
  Report Type: 
  Country: None (occurrence: None)
  Receive Date: 20041202
  Receipt Date: 20041122
  Transmission Date: 20050328
  Serious: Yes (Other)
  Sender: FDA-Public Use
  Company Number: HQWYE646023NOV04

PATIENT
  Age: 82 Year
  Sex: Male
  Weight: 77.18 kg

DRUGS (2)
  1. CORDARONE [Suspect]
     Indication: ATRIAL FIBRILLATION
     Dosage: 250 MG 2X PER 1 DAY, ORAL
     Route: 048
     Dates: start: 20020101
  2. DIURETICS (DIURETICS) [Concomitant]

REACTIONS (4)
  - BREAST MASS [None]
  - BREAST OEDEMA [None]
  - BREAST PAIN [None]
  - HYPERTROPHY BREAST [None]
